FAERS Safety Report 7503894-6 (Version None)
Quarter: 2011Q2

REPORT INFORMATION
  Report Type: 
  Country: None (occurrence: None)
  Receive Date: 20110517
  Receipt Date: 20110517
  Transmission Date: 20111010
  Serious: Yes (Other)
  Sender: FDA-Public Use
  Company Number: None

PATIENT
  Age: 77 Year
  Sex: Male
  Weight: 81.6475 kg

DRUGS (2)
  1. SULFAMETHOXAZOLE AND TRIMETHOPRIM [Suspect]
     Indication: URINARY TRACT INFECTION
     Dosage: ONE TAB 12HRS ORAL 2 TABS 2 TABS
     Route: 048
     Dates: start: 20110518
  2. SULFAMETHOXAZOLE AND TRIMETHOPRIM [Suspect]
     Indication: URINARY TRACT INFECTION
     Dosage: ONE TAB 12HRS ORAL 2 TABS 2 TABS
     Route: 048
     Dates: start: 20110519

REACTIONS (3)
  - URTICARIA [None]
  - HYPERSENSITIVITY [None]
  - ORAL PAIN [None]
